FAERS Safety Report 16656139 (Version 1)
Quarter: 2019Q3

REPORT INFORMATION
  Report Type: Spontaneous
  Country: DE (occurrence: DE)
  Receive Date: 20190801
  Receipt Date: 20190801
  Transmission Date: 20191004
  Serious: Yes (Other)
  Sender: FDA-Public Use
  Company Number: DE-CLINIGEN GROUP PLC/ CLINIGEN HEALTHCARE LTD-DE-CLGN-19-00485

PATIENT
  Sex: Female

DRUGS (1)
  1. FOSCAVIR [Suspect]
     Active Substance: FOSCARNET SODIUM
     Indication: ANTIVIRAL TREATMENT

REACTIONS (2)
  - Pulmonary alveolar haemorrhage [Unknown]
  - Off label use [Unknown]
